FAERS Safety Report 4312310-7 (Version None)
Quarter: 2004Q1

REPORT INFORMATION
  Report Type: 
  Country: None (occurrence: None)
  Receive Date: 20040305
  Receipt Date: 20040224
  Transmission Date: 20041129
  Serious: Yes (Other)
  Sender: FDA-Public Use
  Company Number: NL-GLAXOSMITHKLINE-B0324496A

PATIENT
  Age: 44 Year
  Sex: Female

DRUGS (2)
  1. SUMATRIPTAN SUCCINATE [Suspect]
     Dosage: 100MG PER DAY
     Dates: start: 20040116, end: 20040125
  2. DOMPERIDONE [Concomitant]
     Dosage: 1SUP TWICE PER DAY

REACTIONS (1)
  - COLITIS ULCERATIVE [None]
